FAERS Safety Report 20680351 (Version 1)
Quarter: 2022Q2

REPORT INFORMATION
  Report Type: Report from Study
  Country: US (occurrence: US)
  Receive Date: 20220406
  Receipt Date: 20220406
  Transmission Date: 20220721
  Serious: Yes (Other)
  Sender: FDA-Public Use
  Company Number: US-BAYER-2022A046691

PATIENT
  Age: 60 Year
  Sex: Male

DRUGS (1)
  1. STIVARGA [Suspect]
     Active Substance: REGORAFENIB
     Indication: Colorectal cancer
     Dosage: 80 MG, QD
     Route: 048
     Dates: start: 20220328, end: 20220402

REACTIONS (5)
  - Hepatic pain [Unknown]
  - Malaise [Unknown]
  - Fatigue [Unknown]
  - Hypersomnia [Unknown]
  - Off label use [Not Recovered/Not Resolved]

NARRATIVE: CASE EVENT DATE: 20220329
